FAERS Safety Report 9228058 (Version 3)
Quarter: 2013Q4

REPORT INFORMATION
  Report Type: Spontaneous
  Country: US (occurrence: US)
  Receive Date: 20130412
  Receipt Date: 20131007
  Transmission Date: 20140711
  Serious: Yes (Other)
  Sender: FDA-Public Use
  Company Number: US-BAYER-2013-044921

PATIENT
  Age: 30 Year
  Sex: Female
  Weight: 97.51 kg

DRUGS (6)
  1. YASMIN [Suspect]
     Dosage: UNK
     Dates: start: 2002, end: 2009
  2. OCELLA [Suspect]
     Indication: CONTRACEPTION
     Dosage: UNK
     Dates: start: 2000, end: 2009
  3. METOPROLOL [Concomitant]
     Indication: BLOOD PRESSURE INCREASED
     Dosage: UNK
     Dates: start: 2006
  4. METOPROLOL [Concomitant]
     Indication: BLOOD PRESSURE INCREASED
  5. IRON FOLIC [Concomitant]
     Dosage: UNK
     Dates: start: 2006
  6. THALIDOMIDE [Concomitant]
     Dosage: UNK
     Dates: start: 2006

REACTIONS (10)
  - Axillary vein thrombosis [None]
  - Subclavian vein thrombosis [None]
  - Deep vein thrombosis [None]
  - Injury [None]
  - Pain [None]
  - General physical health deterioration [None]
  - Abdominal pain [None]
  - Emotional distress [None]
  - Anxiety [None]
  - Pain [None]
